FAERS Safety Report 8314482-6 (Version None)
Quarter: 2012Q2

REPORT INFORMATION
  Report Type: 
  Country: None (occurrence: None)
  Receive Date: 20120426
  Receipt Date: 20120418
  Transmission Date: 20120825
  Serious: Yes (Hospitalization)
  Sender: FDA-Public Use
  Company Number: JP-ROCHE-1056897

PATIENT
  Sex: Female
  Weight: 42 kg

DRUGS (8)
  1. AVASTIN [Suspect]
     Indication: COLON CANCER METASTATIC
     Route: 041
     Dates: start: 20100331, end: 20120209
  2. XELODA [Suspect]
     Indication: COLON CANCER METASTATIC
     Dosage: DOSAGE IS UNCERTAIN.
     Route: 048
     Dates: start: 20100217, end: 20110101
  3. OXALIPLATIN [Concomitant]
     Indication: COLON CANCER METASTATIC
     Dosage: DOSAGE IS UNCERTAIN.
     Route: 041
     Dates: start: 20100217, end: 20110929
  4. PYDOXAL [Concomitant]
     Indication: PROPHYLAXIS
     Route: 048
     Dates: start: 20100217, end: 20120210
  5. LAC-B [Concomitant]
     Route: 048
     Dates: start: 20100217
  6. PROMACTA [Concomitant]
     Route: 048
     Dates: start: 20100217
  7. GOSHA-JINKI-GAN [Concomitant]
     Route: 048
  8. XELODA [Suspect]
     Route: 048
     Dates: start: 20111001, end: 20120209

REACTIONS (3)
  - JAUNDICE [None]
  - HEPATIC FUNCTION ABNORMAL [None]
  - BLOOD BILIRUBIN INCREASED [None]
